FAERS Safety Report 9332098 (Version 1)
Quarter: 2013Q2

REPORT INFORMATION
  Report Type: Spontaneous
  Country: US (occurrence: US)
  Receive Date: 20130606
  Receipt Date: 20130606
  Transmission Date: 20140414
  Serious: No
  Sender: FDA-Public Use
  Company Number: US-009507513-1306USA001264

PATIENT
  Sex: 0

DRUGS (1)
  1. REBETOL [Suspect]

REACTIONS (3)
  - Accidental exposure to product [Unknown]
  - Product container issue [Unknown]
  - No adverse event [Unknown]
